FAERS Safety Report 20584164 (Version 1)
Quarter: 2022Q1

REPORT INFORMATION
  Report Type: Other
  Country: US (occurrence: US)
  Receive Date: 20220311
  Receipt Date: 20220311
  Transmission Date: 20220424
  Serious: No
  Sender: FDA-Public Use
  Company Number: US-TRIS PHARMA, INC.-22US010104

PATIENT

DRUGS (2)
  1. DEXMETHYLPHENIDATE HYDROCHLORIDE [Suspect]
     Active Substance: DEXMETHYLPHENIDATE HYDROCHLORIDE
     Indication: Attention deficit hyperactivity disorder
     Dosage: UNK
  2. DEXMETHYLPHENIDATE HYDROCHLORIDE [Concomitant]
     Active Substance: DEXMETHYLPHENIDATE HYDROCHLORIDE
     Indication: Attention deficit hyperactivity disorder

REACTIONS (4)
  - Feeling abnormal [Unknown]
  - Drug ineffective [Unknown]
  - Anxiety [Unknown]
  - Insomnia [Unknown]
